FAERS Safety Report 17094134 (Version 1)
Quarter: 2019Q4

REPORT INFORMATION
  Report Type: Spontaneous
  Country: US (occurrence: US)
  Receive Date: 20191101
  Receipt Date: 20191101
  Transmission Date: 20200122
  Serious: Yes (Hospitalization)
  Sender: FDA-Public Use
  Company Number: None

PATIENT
  Age: 18 Year
  Sex: Male
  Weight: 70.7 kg

DRUGS (7)
  1. HYDROCORTISONE. [Suspect]
     Active Substance: HYDROCORTISONE
     Dates: end: 20191011
  2. CYTARABINE. [Suspect]
     Active Substance: CYTARABINE
     Dates: end: 20191011
  3. METHOTREXATE. [Suspect]
     Active Substance: METHOTREXATE
     Dates: end: 20191011
  4. DEXAMETHASONE. [Suspect]
     Active Substance: DEXAMETHASONE
     Dates: start: 20191010
  5. ERWINIA ASPARAGINASE [Suspect]
     Active Substance: ASPARAGINASE ERWINIA CHRYSANTHEMI
     Dates: start: 20190928
  6. VINCRISTINE SULFATE. [Suspect]
     Active Substance: VINCRISTINE SULFATE
     Dates: end: 20191010
  7. MITOXANTRONE HYDROCHLORIDE. [Suspect]
     Active Substance: MITOXANTRONE HYDROCHLORIDE
     Dates: end: 20190927

REACTIONS (21)
  - Respiratory distress [None]
  - Respiratory failure [None]
  - Hepatic failure [None]
  - Sepsis [None]
  - Colitis [None]
  - Platelet count decreased [None]
  - Capillary leak syndrome [None]
  - Peripheral motor neuropathy [None]
  - Pathogen resistance [None]
  - International normalised ratio increased [None]
  - Pseudomonal sepsis [None]
  - Dizziness [None]
  - Coagulopathy [None]
  - Neutropenia [None]
  - Depressed level of consciousness [None]
  - Fatigue [None]
  - Multiple organ dysfunction syndrome [None]
  - Enterococcal infection [None]
  - Pleural effusion [None]
  - Renal failure [None]
  - Haemofiltration [None]

NARRATIVE: CASE EVENT DATE: 20191021
